FAERS Safety Report 7893553-2 (Version None)
Quarter: 2011Q4

REPORT INFORMATION
  Report Type: 
  Country: None (occurrence: None)
  Receive Date: 20111104
  Receipt Date: 20111028
  Transmission Date: 20120403
  Serious: Yes (Hospitalization, Other)
  Sender: FDA-Public Use
  Company Number: US-US-EMD SERONO, INC.-232125J10USA

PATIENT
  Sex: Female

DRUGS (2)
  1. IBUPROFEN (ADVIL) [Concomitant]
     Indication: PREMEDICATION
  2. REBIF [Suspect]
     Indication: MULTIPLE SCLEROSIS
     Route: 058
     Dates: start: 20050429

REACTIONS (2)
  - GOITRE [None]
  - THYROID CANCER [None]
